FAERS Safety Report 5811226-4 (Version None)
Quarter: 2008Q3

REPORT INFORMATION
  Report Type: 
  Country: None (occurrence: None)
  Receive Date: 20080716
  Receipt Date: 20080710
  Transmission Date: 20090109
  Serious: Yes (Death)
  Sender: FDA-Public Use
  Company Number: GB-BRISTOL-MYERS SQUIBB COMPANY-14257414

PATIENT
  Age: 8 Decade
  Sex: Male

DRUGS (1)
  1. ABILIFY [Suspect]
     Indication: DEMENTIA
     Dosage: TITRATED TO 4MG DAILY

REACTIONS (1)
  - DEATH [None]
